FAERS Safety Report 19026059 (Version 1)
Quarter: 2021Q1

REPORT INFORMATION
  Report Type: Spontaneous
  Country: GB (occurrence: GB)
  Receive Date: 20210318
  Receipt Date: 20210318
  Transmission Date: 20210420
  Serious: Yes (Other)
  Sender: FDA-Public Use
  Company Number: GB-SUN PHARMACEUTICAL INDUSTRIES LTD-2021R1-284402

PATIENT
  Age: 52 Year
  Sex: Male

DRUGS (1)
  1. DEXAMETHASONE. [Suspect]
     Active Substance: DEXAMETHASONE
     Indication: METASTASIS
     Dosage: 8 MILLIGRAM, DAILY
     Route: 048

REACTIONS (3)
  - Chills [Unknown]
  - Toxoplasmosis [Unknown]
  - Encephalopathy [Unknown]
